FAERS Safety Report 4287423-9 (Version None)
Quarter: 2004Q1

REPORT INFORMATION
  Report Type: 
  Country: None (occurrence: None)
  Receive Date: 20040209
  Receipt Date: 20030623
  Transmission Date: 20041129
  Serious: No
  Sender: FDA-Public Use
  Company Number: US-GLAXOSMITHKLINE-A0413590A

PATIENT
  Age: 35 Year
  Sex: Male

DRUGS (1)
  1. PAXIL CR [Suspect]
     Indication: OBSESSIVE-COMPULSIVE DISORDER
     Dosage: 25MG PER DAY
     Route: 048
     Dates: start: 20030601, end: 20030618

REACTIONS (5)
  - CRYING [None]
  - DEPRESSED MOOD [None]
  - HALLUCINATION [None]
  - HEADACHE [None]
  - TINNITUS [None]
